FAERS Safety Report 17868689 (Version 1)
Quarter: 2020Q2

REPORT INFORMATION
  Report Type: Spontaneous
  Country: US (occurrence: US)
  Receive Date: 20200605
  Receipt Date: 20200605
  Transmission Date: 20200714
  Serious: Yes (Other)
  Sender: FDA-Public Use
  Company Number: None

PATIENT
  Age: 72 Year
  Sex: Male

DRUGS (1)
  1. BARICITINIB [Suspect]
     Active Substance: BARICITINIB
     Indication: COVID-19

REACTIONS (6)
  - Haematuria [None]
  - Contusion [None]
  - Conjunctival haemorrhage [None]
  - Respiratory failure [None]
  - Epistaxis [None]
  - Therapy cessation [None]

NARRATIVE: CASE EVENT DATE: 20200423
